FAERS Safety Report 16246960 (Version 1)
Quarter: 2019Q2

REPORT INFORMATION
  Report Type: Spontaneous
  Country: US (occurrence: US)
  Receive Date: 20190427
  Receipt Date: 20190427
  Transmission Date: 20190711
  Serious: No
  Sender: FDA-Public Use
  Company Number: US-TEVA-2019-US-1038006

PATIENT
  Sex: Male

DRUGS (1)
  1. CLONAZEPAM TABLET TEVA [Suspect]
     Active Substance: CLONAZEPAM
     Dosage: 1 MILLIGRAM DAILY;
     Route: 065

REACTIONS (3)
  - Heart rate irregular [Unknown]
  - Blood pressure increased [Unknown]
  - Blood pressure fluctuation [Unknown]
